FAERS Safety Report 19019155 (Version 1)
Quarter: 2021Q1

REPORT INFORMATION
  Report Type: Spontaneous
  Country: PT (occurrence: PT)
  Receive Date: 20210317
  Receipt Date: 20210317
  Transmission Date: 20210420
  Serious: Yes (Other)
  Sender: FDA-Public Use
  Company Number: PT-SA-2021SA079793

PATIENT
  Age: 39 Year
  Weight: 67 kg

DRUGS (3)
  1. AULIN [Concomitant]
     Active Substance: NIMESULIDE
     Dosage: UNK
     Route: 048
  2. BETASERC [Concomitant]
     Active Substance: BETAHISTINE
     Dosage: UNK
     Route: 048
  3. LOVENOX [Suspect]
     Active Substance: ENOXAPARIN SODIUM
     Indication: THROMBOPHLEBITIS
     Dosage: 60 MG, QD
     Route: 058
     Dates: start: 20210201, end: 20210203

REACTIONS (1)
  - Paraesthesia [Recovering/Resolving]

NARRATIVE: CASE EVENT DATE: 20210203
